FAERS Safety Report 21613805 (Version 2)
Quarter: 2023Q2

REPORT INFORMATION
  Report Type: Spontaneous
  Country: CZ (occurrence: CZ)
  Receive Date: 20221118
  Receipt Date: 20230524
  Transmission Date: 20230721
  Serious: Yes (Other)
  Sender: FDA-Public Use
  Company Number: CZ-002147023-NVSC2022CZ243397

PATIENT
  Age: 14 Year
  Sex: Male

DRUGS (1)
  1. IMATINIB [Suspect]
     Active Substance: IMATINIB
     Indication: T-cell type acute leukaemia
     Dosage: 340 MILLIGRAM/SQ. METER
     Route: 065

REACTIONS (5)
  - Drug level increased [Unknown]
  - Therapeutic response decreased [Unknown]
  - Myalgia [Recovered/Resolved]
  - Abdominal pain [Recovered/Resolved]
  - Petechiae [Recovered/Resolved]
